FAERS Safety Report 5915151-X (Version None)
Quarter: 2008Q4

REPORT INFORMATION
  Report Type: 
  Country: None (occurrence: None)
  Receive Date: 20081010
  Receipt Date: 20080930
  Transmission Date: 20090506
  Serious: Yes (Other)
  Sender: FDA-Public Use
  Company Number: US-ROCHE-587078

PATIENT
  Sex: Female
  Weight: 69.9 kg

DRUGS (6)
  1. CAPECITABINE [Suspect]
     Dosage: RECEIVED THREE CYCLES, 6 TABLETS DAILY
     Route: 048
     Dates: start: 20080703, end: 20080910
  2. DEPAKOTE [Concomitant]
     Indication: HEADACHE
     Dosage: FORM:PILL, FREQUENCY:DAILY
     Route: 048
     Dates: start: 20040323
  3. LEVOXYL [Concomitant]
     Indication: HYPOTHYROIDISM
     Dosage: FORM:PILL, FREQUENCY:DAILY
     Route: 048
     Dates: start: 20040323
  4. PRAVACHOL [Concomitant]
     Dosage: FORM: PILL, FREQUENCY: DAILY.
     Route: 048
     Dates: start: 20080323
  5. ZETIA [Concomitant]
     Dosage: FORM: PILL, FREQUENCY: DAILY.
     Route: 048
     Dates: start: 20040323
  6. ASPIRIN [Concomitant]
     Indication: PROPHYLAXIS
     Dosage: FORM: PILL
     Route: 048
     Dates: start: 20040323

REACTIONS (1)
  - DISEASE PROGRESSION [None]
